FAERS Safety Report 9454012 (Version 2)
Quarter: 2013Q4

REPORT INFORMATION
  Report Type: Report from Study
  Country: ES (occurrence: ES)
  Receive Date: 20130812
  Receipt Date: 20131108
  Transmission Date: 20140711
  Serious: Yes (Death, Hospitalization)
  Sender: FDA-Public Use
  Company Number: ES-B.I. PHARMACEUTICALS,INC./RIDGEFIELD-2013-BI-24190GD

PATIENT
  Age: 88 Year
  Sex: Male
  Weight: 51 kg

DRUGS (2)
  1. PRADAXA [Suspect]
     Indication: ATRIAL FIBRILLATION
     Dosage: 220 MG
     Route: 048
  2. ANTIPLATELETS [Suspect]
     Indication: ANTIPLATELET THERAPY

REACTIONS (3)
  - Septic shock [Fatal]
  - Coagulopathy [Fatal]
  - Rectal haemorrhage [Recovered/Resolved]
